FAERS Safety Report 9720935 (Version 1)
Quarter: 2013Q4

REPORT INFORMATION
  Report Type: Spontaneous
  Country: AT (occurrence: AT)
  Receive Date: 20131129
  Receipt Date: 20131129
  Transmission Date: 20140711
  Serious: Yes (Death, Life-Threatening)
  Sender: FDA-Public Use
  Company Number: AT-BRISTOL-MYERS SQUIBB COMPANY-19833342

PATIENT
  Sex: Female

DRUGS (1)
  1. ELIQUIS [Suspect]
     Dosage: FIRST EXPOSURE

REACTIONS (1)
  - Renal failure [Fatal]
